FAERS Safety Report 8917310 (Version 2)
Quarter: 2013Q1

REPORT INFORMATION
  Report Type: Spontaneous
  Country: JP (occurrence: JP)
  Receive Date: 20121120
  Receipt Date: 20130205
  Transmission Date: 20140127
  Serious: Yes (Hospitalization)
  Sender: FDA-Public Use
  Company Number: JP-AMGEN-JPNSP2012073560

PATIENT
  Age: 32 Year
  Sex: Male

DRUGS (12)
  1. MIMPARA [Suspect]
     Indication: HYPERPARATHYROIDISM SECONDARY
     Dosage: 1 DF, UNK
     Route: 048
     Dates: start: 20120622, end: 20121103
  2. MIMPARA [Interacting]
     Dosage: 25 MG, QD
     Route: 048
     Dates: start: 20120622, end: 20121103
  3. ERYTHROCIN [Interacting]
     Indication: ACNE
     Dosage: 3 DF, UNK
     Route: 048
     Dates: start: 20121017
  4. ERYTHROCIN [Interacting]
     Dosage: 100 MG, TID
     Route: 048
     Dates: start: 20121017
  5. DALACIN                            /00166002/ [Concomitant]
     Indication: ACNE
     Route: 061
  6. ACUATIM [Concomitant]
     Indication: ACNE
  7. DEPAS [Concomitant]
     Dosage: 0.25 MG, QD
     Route: 048
  8. TANKARU [Concomitant]
     Dosage: 1000 MG, TID
     Route: 048
  9. PENLES [Concomitant]
     Dosage: 36 MG, 3X/WEEK
     Route: 062
  10. ARTIST [Concomitant]
     Dosage: 10 MG, QD
     Route: 048
  11. OLMETEC [Concomitant]
     Dosage: 20 MG, QD
     Route: 048
  12. FOSRENOL [Concomitant]
     Dosage: 500 MG, TID
     Route: 048

REACTIONS (2)
  - Drug interaction [Unknown]
  - Convulsion [Recovered/Resolved]
